FAERS Safety Report 5280915-5 (Version None)
Quarter: 2007Q1

REPORT INFORMATION
  Report Type: 
  Country: None (occurrence: None)
  Receive Date: 20070329
  Receipt Date: 20070316
  Transmission Date: 20070707
  Serious: Yes (Hospitalization, Other)
  Sender: FDA-Public Use
  Company Number: US-ELI_LILLY_AND_COMPANY-US200703000892

PATIENT
  Age: 43 Year
  Sex: Female

DRUGS (17)
  1. FORTEO [Suspect]
     Indication: OSTEOPOROSIS
     Dates: start: 20061001
  2. BACLOFEN [Concomitant]
     Dosage: 10 MG, 4/D
  3. KLONOPIN [Concomitant]
     Dosage: 0.5 MG, 3/D
  4. PREMARIN [Concomitant]
     Dosage: 0.3 MG, 3/D
  5. HYDROCHLOROTHIAZIDE [Concomitant]
     Dosage: 25 MG, DAILY (1/D)
  6. LISINOPRIL [Concomitant]
     Dosage: 10 MG, DAILY (1/D)
  7. DITROPAN [Concomitant]
     Dosage: 5 MG, 2/D
  8. PROTONIX [Concomitant]
     Dosage: 40 MG, DAILY (1/D)
  9. FOSAMAX [Concomitant]
     Dosage: UNK, WEEKLY (1/W)
  10. RELPAX [Concomitant]
     Dosage: 40 MG, AS NEEDED
  11. ALBUTEROL [Concomitant]
     Dosage: UNK, AS NEEDED
  12. PHENERGAN                          /00033001/ [Concomitant]
     Dosage: UNK, AS NEEDED
     Route: 054
  13. ALLEGRA D                          /01367401/ [Concomitant]
     Dosage: UNK, AS NEEDED
  14. NEURONTIN [Concomitant]
     Dosage: 600 MG, 2/D
  15. TRIAZOLAM [Concomitant]
     Dosage: 0.25 MG, OTHER
  16. OXYCODONE HCL [Concomitant]
     Dosage: 40 MG, AS NEEDED
  17. OXYCONTIN [Concomitant]
     Dosage: 90 MG, 3/D

REACTIONS (3)
  - INTRACRANIAL HYPOTENSION [None]
  - POST PROCEDURAL COMPLICATION [None]
  - PSEUDOMENINGOCELE [None]
